FAERS Safety Report 4642063-4 (Version None)
Quarter: 2005Q2

REPORT INFORMATION
  Report Type: 
  Country: None (occurrence: None)
  Receive Date: 20050422
  Receipt Date: 20050411
  Transmission Date: 20051028
  Serious: Yes (Other)
  Sender: FDA-Public Use
  Company Number: GR-JNJFOC-20050403284

PATIENT
  Age: 52 Year
  Sex: Male

DRUGS (3)
  1. INFLIXIMAB [Suspect]
     Route: 042
  2. CYCLOSPORINE [Concomitant]
  3. CYCLOSPORINE [Concomitant]

REACTIONS (1)
  - PSORIATIC ARTHROPATHY [None]
